FAERS Safety Report 9721964 (Version 1)
Quarter: 2013Q4

REPORT INFORMATION
  Report Type: Spontaneous
  Country: US (occurrence: US)
  Receive Date: 20131202
  Receipt Date: 20131202
  Transmission Date: 20140711
  Serious: Yes (Death, Hospitalization)
  Sender: FDA-Public Use
  Company Number: US-INDICUS PHARMA-000161

PATIENT
  Age: 4 Year
  Sex: Female

DRUGS (1)
  1. METFORMIN HYDROCHLORIDE [Suspect]
     Route: 048

REACTIONS (6)
  - Shock hypoglycaemic [Fatal]
  - Toxicity to various agents [Fatal]
  - Lactic acidosis [Unknown]
  - Hypotension [Unknown]
  - Haematemesis [Unknown]
  - Bradycardia [Unknown]
